FAERS Safety Report 25841189 (Version 1)
Quarter: 2025Q3

REPORT INFORMATION
  Report Type: Spontaneous
  Country: CN (occurrence: CN)
  Receive Date: 20250924
  Receipt Date: 20250924
  Transmission Date: 20251021
  Serious: Yes (Other)
  Sender: ROCHE
  Company Number: CN-ROCHE-10000387684

PATIENT
  Age: 69 Year
  Sex: Male

DRUGS (4)
  1. OBINUTUZUMAB [Suspect]
     Active Substance: OBINUTUZUMAB
     Indication: Diffuse large B-cell lymphoma
     Route: 065
  2. GLOFITAMAB [Suspect]
     Active Substance: GLOFITAMAB
     Indication: Diffuse large B-cell lymphoma
     Route: 065
  3. GLOFITAMAB [Suspect]
     Active Substance: GLOFITAMAB
     Route: 065
  4. ZANUBRUTINIB [Suspect]
     Active Substance: ZANUBRUTINIB
     Indication: Diffuse large B-cell lymphoma
     Dosage: MOST RECENT DOSE 02 APR 2025, THE PATIENT WAS TREATED WITH TWO CYCLES OF POLA +R-?CHP CHEMOTHERAPY (
     Route: 065

REACTIONS (5)
  - Cytokine release syndrome [Recovered/Resolved]
  - Immune effector cell-associated neurotoxicity syndrome [Recovered/Resolved]
  - Liver injury [Recovering/Resolving]
  - Renal injury [Recovering/Resolving]
  - Myocardial injury [Recovering/Resolving]

NARRATIVE: CASE EVENT DATE: 20250509
